FAERS Safety Report 20413025 (Version 1)
Quarter: 2022Q1

REPORT INFORMATION
  Report Type: Report from Study
  Country: CO (occurrence: CO)
  Receive Date: 20220201
  Receipt Date: 20220201
  Transmission Date: 20220423
  Serious: Yes (Other)
  Sender: FDA-Public Use
  Company Number: CO-AstraZeneca-2022A047156

PATIENT
  Age: 0 Year
  Sex: Female
  Weight: 2.7 kg

DRUGS (1)
  1. SYNAGIS [Suspect]
     Active Substance: PALIVIZUMAB
     Indication: Respiratory syncytial virus infection
     Dosage: CUMULATIVE DOSE TO FIRST REACTION(NO): 45 MG/KG
     Route: 030
     Dates: start: 20211117

REACTIONS (2)
  - Crying [Not Recovered/Not Resolved]
  - COVID-19 [Not Recovered/Not Resolved]

NARRATIVE: CASE EVENT DATE: 20220125
